FAERS Safety Report 19483506 (Version 1)
Quarter: 2021Q3

REPORT INFORMATION
  Report Type: Spontaneous
  Country: CA (occurrence: CA)
  Receive Date: 20210701
  Receipt Date: 20210701
  Transmission Date: 20211014
  Serious: Yes (Other)
  Sender: FDA-Public Use
  Company Number: CA-PFIZER INC-2021734541

PATIENT
  Age: 89 Year
  Sex: Female

DRUGS (1)
  1. GABAPENTIN. [Suspect]
     Active Substance: GABAPENTIN
     Indication: NEURALGIA
     Dosage: 100 MG

REACTIONS (4)
  - Dizziness [Unknown]
  - Off label use [Unknown]
  - Thrombosis [Unknown]
  - Wrong technique in product usage process [Unknown]
